FAERS Safety Report 5105319-7 (Version None)
Quarter: 2006Q3

REPORT INFORMATION
  Report Type: 
  Country: None (occurrence: None)
  Receive Date: 20060912
  Receipt Date: 20060904
  Transmission Date: 20061208
  Serious: Yes (Death, Hospitalization)
  Sender: FDA-Public Use
  Company Number: 2006-01525

PATIENT
  Age: 69 Year
  Sex: Male
  Weight: 59 kg

DRUGS (8)
  1. VELCADE [Suspect]
     Indication: LYMPHOMA
     Dosage: 3.00 MG, INTRAVENOUS; SEE IMAGE
     Route: 042
     Dates: end: 20060309
  2. VELCADE [Suspect]
     Indication: LYMPHOMA
     Dosage: 3.00 MG, INTRAVENOUS; SEE IMAGE
     Route: 042
     Dates: start: 20051103
  3. EPOETIN BETA (EPOETIN BETA) [Concomitant]
  4. CARBAMAZEPINE [Concomitant]
  5. DEPAKENE [Concomitant]
  6. VALACYCLOVIR [Concomitant]
  7. BACTRIM [Concomitant]
  8. VORICONAZOLE (VORICONAZOLE) [Concomitant]

REACTIONS (32)
  - ABDOMINAL TENDERNESS [None]
  - ACUTE PULMONARY OEDEMA [None]
  - AGITATION [None]
  - ALANINE AMINOTRANSFERASE INCREASED [None]
  - ANAEMIA [None]
  - ASPARTATE AMINOTRANSFERASE INCREASED [None]
  - BLOOD CREATININE INCREASED [None]
  - BLOOD POTASSIUM INCREASED [None]
  - BLOOD UREA INCREASED [None]
  - BRAIN SCAN ABNORMAL [None]
  - C-REACTIVE PROTEIN INCREASED [None]
  - CALCINOSIS [None]
  - CARDIOMEGALY [None]
  - CONFUSIONAL STATE [None]
  - DEHYDRATION [None]
  - DISORIENTATION [None]
  - DRUG INEFFECTIVE [None]
  - GENERAL PHYSICAL HEALTH DETERIORATION [None]
  - HEPATOMEGALY [None]
  - HYPERAESTHESIA [None]
  - HYPERBILIRUBINAEMIA [None]
  - HYPERKALAEMIA [None]
  - HYPONATRAEMIA [None]
  - LEFT VENTRICULAR FAILURE [None]
  - LOSS OF CONSCIOUSNESS [None]
  - LYMPHADENOPATHY [None]
  - MONOCYTE PERCENTAGE INCREASED [None]
  - PANCYTOPENIA [None]
  - PULMONARY HYPERTENSION [None]
  - RALES [None]
  - RESPIRATORY DISTRESS [None]
  - THROMBOCYTOPENIA [None]
